FAERS Safety Report 24626689 (Version 1)
Quarter: 2024Q4

REPORT INFORMATION
  Report Type: Spontaneous
  Country: US (occurrence: US)
  Receive Date: 20241115
  Receipt Date: 20241115
  Transmission Date: 20250114
  Serious: No
  Sender: MERCK
  Company Number: US-009507513-2411USA002504

PATIENT
  Age: 48 Year
  Sex: Male

DRUGS (4)
  1. CUBICIN [Suspect]
     Active Substance: DAPTOMYCIN
     Indication: Enterococcal infection
     Dosage: HIGH-DOSE DAPTOMYCIN (12 MG/KG) EVERY 48 HOURS
  2. CIDOFOVIR [Concomitant]
     Active Substance: CIDOFOVIR
     Indication: Human polyomavirus infection
     Dosage: 1 DOSE WEEKLY FOR 3 WEEKS
     Route: 043
  3. CIDOFOVIR [Concomitant]
     Active Substance: CIDOFOVIR
     Indication: Cystitis
  4. AMPICILLIN [Concomitant]
     Active Substance: AMPICILLIN
     Indication: Enterococcal infection
     Dosage: UNK

REACTIONS (2)
  - Pathogen resistance [Unknown]
  - Product use in unapproved indication [Unknown]
